FAERS Safety Report 6941217-1 (Version None)
Quarter: 2010Q3

REPORT INFORMATION
  Report Type: 
  Country: None (occurrence: None)
  Receive Date: 20100825
  Receipt Date: 20100716
  Transmission Date: 20110219
  Serious: No
  Sender: FDA-Public Use
  Company Number: US-BRISTOL-MYERS SQUIBB COMPANY-15176324

PATIENT
  Age: 65 Year
  Sex: Male

DRUGS (9)
  1. ONGLYZA [Suspect]
     Indication: DIABETES MELLITUS
     Dosage: EVERY MORNING
     Dates: start: 20100301
  2. BENICAR [Concomitant]
  3. METOPROLOL [Concomitant]
     Dosage: METOPROLOL ER
  4. ACTOS [Concomitant]
  5. GLYBURIDE [Concomitant]
  6. PLAVIX [Concomitant]
  7. CADUET [Concomitant]
  8. HYDROCHLOROTHIAZIDE [Concomitant]
  9. FOLBIC [Concomitant]

REACTIONS (1)
  - UPPER RESPIRATORY TRACT INFECTION [None]
